FAERS Safety Report 5325085-X (Version None)
Quarter: 2007Q2

REPORT INFORMATION
  Report Type: 
  Country: None (occurrence: None)
  Receive Date: 20070515
  Receipt Date: 20070504
  Transmission Date: 20071010
  Serious: Yes (Death)
  Sender: FDA-Public Use
  Company Number: US-KINGPHARMUSA00001-K200700560

PATIENT

DRUGS (1)
  1. SKELAXIN [Suspect]
     Indication: PAIN

REACTIONS (3)
  - DEATH [None]
  - DRUG LEVEL INCREASED [None]
  - OVERDOSE [None]
